FAERS Safety Report 9770104 (Version 2)
Quarter: 2013Q4

REPORT INFORMATION
  Report Type: Spontaneous
  Country: US (occurrence: US)
  Receive Date: 20131218
  Receipt Date: 20131218
  Transmission Date: 20140711
  Serious: Yes (Other)
  Sender: FDA-Public Use
  Company Number: US-VERTEX PHARMACEUTICALS INC-AE-2011-000863

PATIENT
  Sex: 0

DRUGS (9)
  1. INCIVEK [Suspect]
     Indication: HEPATITIS C
     Dates: start: 20110728
  2. RIBASPHERE [Concomitant]
     Indication: HEPATITIS C
     Dates: start: 20110728
  3. PEGASYS [Concomitant]
     Indication: HEPATITIS C
     Route: 058
     Dates: start: 20110728
  4. OXYCODONE [Concomitant]
  5. ZOLOFT [Concomitant]
  6. KADIAN [Concomitant]
  7. SPIRONOLACTONE [Concomitant]
  8. XIFAXAN [Concomitant]
  9. MVI [Concomitant]

REACTIONS (2)
  - Hepatic encephalopathy [Unknown]
  - Drug dose omission [Recovered/Resolved]
